FAERS Safety Report 8603388-0 (Version None)
Quarter: 2012Q3

REPORT INFORMATION
  Report Type: 
  Country: None (occurrence: None)
  Receive Date: 20120817
  Receipt Date: 20120815
  Transmission Date: 20120928
  Serious: Yes (Other)
  Sender: FDA-Public Use
  Company Number: US-PFIZER INC-2012201033

PATIENT
  Age: 39 Year
  Sex: Female
  Weight: 74.83 kg

DRUGS (2)
  1. CHANTIX [Suspect]
     Indication: SMOKING CESSATION THERAPY
     Dosage: 0.5 MG, DAILY
     Route: 048
     Dates: start: 20120703, end: 20120701
  2. CHANTIX [Suspect]
     Dosage: 1 MG, 2X/DAY
     Route: 048
     Dates: start: 20120701, end: 20120701

REACTIONS (7)
  - FEELING ABNORMAL [None]
  - BEDRIDDEN [None]
  - FATIGUE [None]
  - EUPHORIC MOOD [None]
  - PERSONALITY CHANGE [None]
  - PARANOIA [None]
  - ANXIETY [None]
